FAERS Safety Report 5081182-8 (Version None)
Quarter: 2006Q3

REPORT INFORMATION
  Report Type: 
  Country: None (occurrence: None)
  Receive Date: 20060814
  Receipt Date: 20060814
  Transmission Date: 20061208
  Serious: Yes (Death)
  Sender: FDA-Public Use
  Company Number: None

PATIENT
  Age: 87 Year
  Sex: Female

DRUGS (2)
  1. CLOPIDOGREL FOR SMALL VESSEL CEREBROVASCULAR [Suspect]
  2. ASPIRIN [Suspect]
     Dosage: 81MG

REACTIONS (1)
  - HAEMORRHAGE INTRACRANIAL [None]
